FAERS Safety Report 11138741 (Version 1)
Quarter: 2015Q2

REPORT INFORMATION
  Report Type: Spontaneous
  Country: US (occurrence: None)
  Receive Date: 20150526
  Receipt Date: 20150526
  Transmission Date: 20150821
  Serious: Yes (Death)
  Sender: FDA-Public Use
  Company Number: None

PATIENT
  Age: 66 Year
  Sex: Male

DRUGS (6)
  1. HYDROMORPHONE [Concomitant]
     Active Substance: HYDROMORPHONE
  2. REVLIMID [Suspect]
     Active Substance: LENALIDOMIDE
     Indication: PLASMA CELL MYELOMA
     Route: 048
     Dates: start: 201504, end: 201505
  3. LORAZEPAM. [Concomitant]
     Active Substance: LORAZEPAM
  4. BISACODYL. [Concomitant]
     Active Substance: BISACODYL
  5. MORPHINE [Concomitant]
     Active Substance: MORPHINE
  6. SENNOSIDES. [Concomitant]
     Active Substance: SENNOSIDES

REACTIONS (4)
  - Diarrhoea [None]
  - Dyspnoea [None]
  - No therapeutic response [None]
  - Oedema peripheral [None]

NARRATIVE: CASE EVENT DATE: 20150522
